FAERS Safety Report 7552474-5 (Version None)
Quarter: 2011Q2

REPORT INFORMATION
  Report Type: 
  Country: None (occurrence: None)
  Receive Date: 20110616
  Receipt Date: 20110610
  Transmission Date: 20111010
  Serious: No
  Sender: FDA-Public Use
  Company Number: US-CEPHALON-2011002952

PATIENT
  Sex: Male

DRUGS (2)
  1. FENTORA [Suspect]
     Indication: BACK PAIN
     Route: 002
  2. PERCOCET [Concomitant]
     Route: 048

REACTIONS (1)
  - CIRCUMSTANCE OR INFORMATION CAPABLE OF LEADING TO MEDICATION ERROR [None]
